FAERS Safety Report 7344594-5 (Version None)
Quarter: 2011Q1

REPORT INFORMATION
  Report Type: 
  Country: None (occurrence: None)
  Receive Date: 20110310
  Receipt Date: 20110211
  Transmission Date: 20110831
  Serious: No
  Sender: FDA-Public Use
  Company Number: US-B.I. PHARMACEUTICALS,INC./RIDGEFIELD-2011-BP-00430BP

PATIENT
  Sex: Male

DRUGS (19)
  1. IRON [Concomitant]
  2. COREG [Concomitant]
     Indication: HYPERTENSION
  3. HUMALIN [Concomitant]
     Indication: DIABETES MELLITUS
  4. PLAVIX [Concomitant]
     Indication: ATRIAL FIBRILLATION
  5. LASIX [Concomitant]
     Indication: RENAL FAILURE
  6. CALCIUM [Concomitant]
  7. ASCORBIC ACID [Concomitant]
  8. SENECOT S [Concomitant]
  9. PRANDIN [Concomitant]
  10. NORVASC [Concomitant]
     Indication: HYPERTENSION
  11. SYNTHROID [Concomitant]
     Indication: HYPOTHYROIDISM
  12. ALLOPURINOL [Concomitant]
  13. PROZAC [Concomitant]
     Indication: DEPRESSION
  14. VITAMIN D [Concomitant]
  15. COLACE [Concomitant]
  16. INSULIN [Concomitant]
  17. PRADAXA [Suspect]
     Indication: ATRIAL FIBRILLATION
     Dosage: 150 MG
     Route: 048
     Dates: start: 20101218
  18. OMEPRAZOLE [Concomitant]
     Dosage: 40 MG
  19. FLOMAX [Concomitant]
     Dosage: 0.8 MG

REACTIONS (1)
  - BLOOD GLUCOSE INCREASED [None]
